FAERS Safety Report 5878011-9 (Version None)
Quarter: 2008Q3

REPORT INFORMATION
  Report Type: 
  Country: None (occurrence: None)
  Receive Date: 20080911
  Receipt Date: 20080901
  Transmission Date: 20090109
  Serious: Yes (Hospitalization, Disabling, Other)
  Sender: FDA-Public Use
  Company Number: AU-JNJFOC-20080203628

PATIENT
  Sex: Male
  Weight: 70.4 kg

DRUGS (10)
  1. TMC114 [Suspect]
     Route: 048
  2. TMC114 [Suspect]
     Indication: HIV INFECTION
     Route: 048
  3. RITONAVIR [Suspect]
     Route: 048
  4. RITONAVIR [Suspect]
     Indication: HIV INFECTION
     Route: 048
  5. COMBIVIR [Concomitant]
     Indication: HIV INFECTION
     Route: 048
  6. VIREAD [Concomitant]
     Indication: HIV INFECTION
     Route: 048
  7. SYMBICORT [Concomitant]
     Route: 055
  8. CORTISONE ACETATE [Concomitant]
     Indication: PROPHYLAXIS
     Route: 048
  9. COVERSYL [Concomitant]
     Indication: PROPHYLAXIS
     Route: 048
  10. VENTOLIN [Concomitant]
     Indication: PROPHYLAXIS
     Route: 055

REACTIONS (8)
  - CACHEXIA [None]
  - CARTILAGE INJURY [None]
  - CHRONIC OBSTRUCTIVE PULMONARY DISEASE [None]
  - DRUG INEFFECTIVE [None]
  - LIPOATROPHY [None]
  - OSTEONECROSIS [None]
  - PAIN IN EXTREMITY [None]
  - PNEUMONIA PNEUMOCOCCAL [None]
